FAERS Safety Report 6240004-X (Version None)
Quarter: 2009Q2

REPORT INFORMATION
  Report Type: 
  Country: None (occurrence: None)
  Receive Date: 20090623
  Receipt Date: 20090612
  Transmission Date: 20091009
  Serious: Yes (Other)
  Sender: FDA-Public Use
  Company Number: PHHY2009BE22863

PATIENT
  Age: 16 Year
  Sex: Male

DRUGS (2)
  1. RITALIN LA [Suspect]
     Indication: ATTENTION DEFICIT/HYPERACTIVITY DISORDER
     Dosage: 1 RITALIN LA 30 MG IN THE MORNING + 1 RITALIN LA 20 MG IN THE AFTERNOON
     Route: 045
     Dates: start: 20070301
  2. RITALIN [Suspect]
     Indication: ATTENTION DEFICIT/HYPERACTIVITY DISORDER
     Dosage: UNK
     Route: 045
     Dates: start: 20050901

REACTIONS (2)
  - DRUG ABUSE [None]
  - INCORRECT ROUTE OF DRUG ADMINISTRATION [None]
